FAERS Safety Report 8914237 (Version 2)
Quarter: 2013Q4

REPORT INFORMATION
  Report Type: Spontaneous
  Country: FR (occurrence: FR)
  Receive Date: 20121119
  Receipt Date: 20131003
  Transmission Date: 20140711
  Serious: Yes (Hospitalization)
  Sender: FDA-Public Use
  Company Number: FR-SANOFI-AVENTIS-2012SA082315

PATIENT
  Age: 85 Year
  Sex: Male

DRUGS (10)
  1. LASILIX [Suspect]
     Indication: PRODUCT USED FOR UNKNOWN INDICATION
     Route: 048
     Dates: start: 201207
  2. ATACAND [Suspect]
     Indication: PRODUCT USED FOR UNKNOWN INDICATION
     Dosage: STRENGTH : 4 MG
     Route: 048
     Dates: end: 20120828
  3. ALLOPURINOL [Concomitant]
     Route: 048
     Dates: end: 20120829
  4. PLAVIX [Concomitant]
     Route: 048
  5. TAHOR [Concomitant]
     Route: 048
  6. PARIET [Concomitant]
     Route: 048
  7. CARDENSIEL [Concomitant]
     Route: 048
  8. HEMIGOXINE NATIVELLE [Concomitant]
     Route: 048
  9. LERCAN [Concomitant]
     Route: 048
  10. TRINITRINE [Concomitant]
     Route: 048

REACTIONS (3)
  - Hyperkalaemia [Recovering/Resolving]
  - Drug interaction [Recovering/Resolving]
  - Renal impairment [Recovering/Resolving]
